FAERS Safety Report 24569116 (Version 1)
Quarter: 2024Q4

REPORT INFORMATION
  Report Type: Spontaneous
  Country: US (occurrence: None)
  Receive Date: 20241030
  Receipt Date: 20241030
  Transmission Date: 20250115
  Serious: Yes (Death)
  Sender: Public
  Company Number: None

PATIENT
  Age: 47 Year
  Sex: Male
  Weight: 150 kg

DRUGS (17)
  1. MULTIHANCE [Suspect]
     Active Substance: GADOBENATE DIMEGLUMINE
     Indication: Magnetic resonance imaging
     Route: 042
  2. TOCILIZUMAB [Suspect]
     Active Substance: TOCILIZUMAB
     Indication: Rheumatoid arthritis
     Dosage: OTHER FREQUENCY : Q 4 WEEKS;?
     Route: 042
     Dates: start: 20240725, end: 20241022
  3. ALPRAZOLAM [Concomitant]
     Active Substance: ALPRAZOLAM
  4. BACLOFEN [Concomitant]
     Active Substance: BACLOFEN
  5. CELECOXIB [Concomitant]
     Active Substance: CELECOXIB
  6. CHOLECALCIFEROL [Concomitant]
     Active Substance: CHOLECALCIFEROL
  7. dextroamphetamine-ampetamine ER 15 [Concomitant]
  8. DULOXETINE [Concomitant]
     Active Substance: DULOXETINE
  9. FOLIC ACID [Concomitant]
     Active Substance: FOLIC ACID
  10. METHOTREXATE SODIUM [Concomitant]
     Active Substance: METHOTREXATE SODIUM
  11. VITAMINS [Concomitant]
     Active Substance: VITAMINS
  12. OMEPRAZOLE [Concomitant]
     Active Substance: OMEPRAZOLE
  13. QUETIAPINE [Concomitant]
     Active Substance: QUETIAPINE
  14. SEMAGLUTIDE [Concomitant]
     Active Substance: SEMAGLUTIDE
  15. SILODOSIN [Concomitant]
     Active Substance: SILODOSIN
  16. TRAZODONE [Concomitant]
     Active Substance: TRAZODONE HYDROCHLORIDE
  17. MINERALS\VITAMINS [Concomitant]
     Active Substance: MINERALS\VITAMINS

REACTIONS (4)
  - Cyanosis [None]
  - Loss of consciousness [None]
  - Angioedema [None]
  - Contrast media reaction [None]

NARRATIVE: CASE EVENT DATE: 20241022
